FAERS Safety Report 9234672 (Version 1)
Quarter: 2013Q2

REPORT INFORMATION
  Report Type: Report from Study
  Country: US (occurrence: US)
  Receive Date: 20130416
  Receipt Date: 20130416
  Transmission Date: 20140414
  Serious: Yes (Hospitalization)
  Sender: FDA-Public Use
  Company Number: US-ELI_LILLY_AND_COMPANY-US201304002320

PATIENT
  Age: 64 Year
  Sex: Female
  Weight: 63.95 kg

DRUGS (16)
  1. GEMCITABINE HYDROCHLORIDE [Suspect]
     Indication: PANCREATIC CARCINOMA
     Dosage: 1000 MG/M2, UNK
     Route: 042
     Dates: start: 20120313, end: 20130117
  2. OTHER PHARMA COMPANY INV DRUG [Suspect]
     Indication: PANCREATIC CARCINOMA
     Dosage: 700 MG, UNK
     Route: 042
     Dates: start: 20120313, end: 20130117
  3. CREON [Concomitant]
     Dosage: UNK
     Dates: start: 20120222
  4. ATIVAN [Concomitant]
     Dosage: UNK
     Dates: start: 20120222
  5. REGLAN [Concomitant]
     Dosage: UNK
     Dates: start: 20120222
  6. ZOFRAN [Concomitant]
     Dosage: UNK
     Dates: start: 20120222
  7. MARINOL [Concomitant]
     Dosage: UNK
     Dates: start: 20120222
  8. CRESTOR [Concomitant]
     Dosage: UNK
     Dates: start: 20120211
  9. ASPIRIN [Concomitant]
     Dosage: UNK
     Dates: start: 20120211
  10. ENALAPRIL [Concomitant]
     Dosage: UNK
     Dates: start: 20120211
  11. ATENOLOL [Concomitant]
     Dosage: UNK
     Dates: start: 20120211
  12. NOVOLOG [Concomitant]
     Dosage: UNK
     Dates: start: 20120211
  13. LANTUS [Concomitant]
     Dosage: UNK
     Dates: start: 20120211
  14. TYLENOL /00020001/ [Concomitant]
     Dosage: UNK
     Dates: start: 20120313
  15. KYTRIL [Concomitant]
     Dosage: UNK
     Dates: start: 20120313
  16. ARANESP [Concomitant]
     Dosage: UNK
     Dates: start: 20121220

REACTIONS (2)
  - Hypertensive crisis [Not Recovered/Not Resolved]
  - Cardiac failure congestive [Unknown]
